FAERS Safety Report 5358350-0 (Version None)
Quarter: 2007Q2

REPORT INFORMATION
  Report Type: 
  Country: None (occurrence: None)
  Receive Date: 20070530
  Receipt Date: 20070207
  Transmission Date: 20071010
  Serious: Yes (Other)
  Sender: FDA-Public Use
  Company Number: US200601004251

PATIENT
  Age: 47 Year
  Weight: 95.2 kg

DRUGS (24)
  1. ZYPREXA [Suspect]
     Indication: DEPRESSION
     Dosage: 2.5 MG; 15 MG
     Dates: start: 19980101
  2. PREMARIN [Concomitant]
  3. PAXIL [Concomitant]
  4. LORAZEPAM [Concomitant]
  5. DEPAKOTE [Concomitant]
  6. WELLBUTRIN [Concomitant]
  7. LAMICTAL [Concomitant]
  8. AXID [Concomitant]
  9. HYDROCODONE BITARTRATE [Concomitant]
  10. MOBAN [Concomitant]
  11. AMILORIDE HYDROCHLORIDE [Concomitant]
  12. CEPHALEXIN [Concomitant]
  13. CIPRO [Concomitant]
  14. ZOLOFT [Concomitant]
  15. TOPROL-XL [Concomitant]
  16. TOPROL-XL [Concomitant]
  17. NEURONTIN [Concomitant]
  18. LIPITOR [Concomitant]
  19. BIAXIN [Concomitant]
  20. CLONAZEPAM [Concomitant]
  21. LOPERAMIDE HCL [Concomitant]
  22. NITROGLYCERIN [Concomitant]
  23. ALTACE [Concomitant]
  24. MONOPRIL [Concomitant]

REACTIONS (2)
  - DIABETES MELLITUS NON-INSULIN-DEPENDENT [None]
  - WEIGHT INCREASED [None]
